FAERS Safety Report 7855135-8 (Version None)
Quarter: 2011Q4

REPORT INFORMATION
  Report Type: 
  Country: None (occurrence: None)
  Receive Date: 20111026
  Receipt Date: 20111024
  Transmission Date: 20120403
  Serious: Yes (Death, Hospitalization, Other)
  Sender: FDA-Public Use
  Company Number: PHHY2011CR92347

PATIENT
  Age: 73 Year
  Sex: Female

DRUGS (6)
  1. DEXAMETHASONE [Concomitant]
  2. MELPHALAN HYDROCHLORIDE [Concomitant]
  3. ZOLEDRONOC ACID [Suspect]
     Dosage: 5 MG, UNK
     Route: 042
     Dates: start: 20081201
  4. INSULIN [Concomitant]
  5. FUROSEMIDE [Concomitant]
  6. IRBESARTAN [Concomitant]

REACTIONS (4)
  - HAEMOGLOBIN DECREASED [None]
  - DEATH [None]
  - MULTIPLE MYELOMA [None]
  - PNEUMONIA [None]
